FAERS Safety Report 16111286 (Version 1)
Quarter: 2019Q1

REPORT INFORMATION
  Report Type: Spontaneous
  Country: ES (occurrence: ES)
  Receive Date: 20190325
  Receipt Date: 20190325
  Transmission Date: 20190418
  Serious: Yes (Other)
  Sender: FDA-Public Use
  Company Number: ES-MYLANLABS-2019M1023930

PATIENT
  Age: 52 Year
  Sex: Male

DRUGS (2)
  1. CEFTAZIDIME. [Suspect]
     Active Substance: CEFTAZIDIME
     Indication: POST PROCEDURAL INFECTION
     Dosage: 1 G, UNK
     Route: 042
  2. TOBRAMYCIN. [Suspect]
     Active Substance: TOBRAMYCIN
     Indication: POST PROCEDURAL INFECTION
     Dosage: 100 MG, UNK
     Route: 042

REACTIONS (1)
  - Pathogen resistance [Unknown]
